FAERS Safety Report 25934458 (Version 1)
Quarter: 2025Q4

REPORT INFORMATION
  Report Type: Other
  Country: EU (occurrence: EU)
  Receive Date: 20251017
  Receipt Date: 20251017
  Transmission Date: 20260119
  Serious: Yes (Other)
  Sender: LANTHEUS MEDICAL IMAGING
  Company Number: EU-LANTHEUS-LMI-2025-01382

PATIENT
  Age: 60 Year
  Sex: Male

DRUGS (4)
  1. PERFLUTREN [Suspect]
     Active Substance: PERFLUTREN
     Indication: High intensity focused ultrasound
     Dosage: UNK
     Route: 042
     Dates: start: 20250218, end: 20250218
  2. PERFLUTREN [Suspect]
     Active Substance: PERFLUTREN
     Dosage: UNK
     Route: 042
     Dates: start: 20250311, end: 20250311
  3. PERFLUTREN [Suspect]
     Active Substance: PERFLUTREN
     Dosage: UNK
     Route: 042
     Dates: start: 20250401, end: 20250401
  4. PERFLUTREN [Suspect]
     Active Substance: PERFLUTREN
     Dosage: UNK
     Route: 042
     Dates: start: 20250422, end: 20250422

REACTIONS (1)
  - Subdural haematoma [Not Recovered/Not Resolved]

NARRATIVE: CASE EVENT DATE: 20250502
